FAERS Safety Report 24458369 (Version 1)
Quarter: 2024Q4

REPORT INFORMATION
  Report Type: Report from Study
  Country: CA (occurrence: CA)
  Receive Date: 20241018
  Receipt Date: 20241018
  Transmission Date: 20250115
  Serious: No
  Sender: ROCHE
  Company Number: CA-ROCHE-3521960

PATIENT
  Sex: Female

DRUGS (10)
  1. RITUXAN [Suspect]
     Active Substance: RITUXIMAB
     Indication: Rheumatoid arthritis
     Dosage: DAY 1, 15?LAST INFUSION: 05/APR/2023
     Route: 042
     Dates: start: 20190321, end: 20230405
  2. METHOTREXATE [Concomitant]
     Active Substance: METHOTREXATE
  3. ACETAMINOPHEN [Concomitant]
     Active Substance: ACETAMINOPHEN
     Route: 048
     Dates: start: 20190321
  4. DIPHENHYDRAMINE [Concomitant]
     Active Substance: DIPHENHYDRAMINE
     Route: 048
     Dates: start: 20190321
  5. FOLIC ACID [Concomitant]
     Active Substance: FOLIC ACID
  6. METHYLPREDNISOLONE [Concomitant]
     Active Substance: METHYLPREDNISOLONE
     Route: 042
     Dates: start: 20190321, end: 20190404
  7. METHYLPREDNISOLONE [Concomitant]
     Active Substance: METHYLPREDNISOLONE
     Route: 042
     Dates: start: 20191002
  8. METHYLPREDNISOLONE [Concomitant]
     Active Substance: METHYLPREDNISOLONE
     Route: 042
     Dates: start: 20200531
  9. METHYLPREDNISOLONE [Concomitant]
     Active Substance: METHYLPREDNISOLONE
     Route: 042
     Dates: start: 20201109
  10. PREDNISONE [Concomitant]
     Active Substance: PREDNISONE
     Route: 048

REACTIONS (1)
  - Toothache [Unknown]
